FAERS Safety Report 6139417-6 (Version None)
Quarter: 2009Q2

REPORT INFORMATION
  Report Type: 
  Country: None (occurrence: None)
  Receive Date: 20090401
  Receipt Date: 20090331
  Transmission Date: 20091009
  Serious: Yes (Other)
  Sender: FDA-Public Use
  Company Number: US-JNJFOC-20090102732

PATIENT
  Age: 21 Year
  Sex: Female

DRUGS (1)
  1. MONONESSA [Suspect]
     Indication: DRUG USE FOR UNKNOWN INDICATION
     Route: 065

REACTIONS (3)
  - METRORRHAGIA [None]
  - MOOD SWINGS [None]
  - UTERINE SPASM [None]
